FAERS Safety Report 25061884 (Version 1)
Quarter: 2025Q1

REPORT INFORMATION
  Report Type: Spontaneous
  Country: CA (occurrence: CA)
  Receive Date: 20250311
  Receipt Date: 20250311
  Transmission Date: 20250408
  Serious: Yes (Hospitalization)
  Sender: ROCHE
  Company Number: CA-002147023-NVSC2025CA037176

PATIENT
  Age: 65 Year
  Sex: Female

DRUGS (1)
  1. OMALIZUMAB [Suspect]
     Active Substance: OMALIZUMAB
     Indication: Asthma
     Route: 065

REACTIONS (6)
  - Asthma [Unknown]
  - Conjunctivitis [Unknown]
  - Eustachian tube dysfunction [Unknown]
  - Obstructive airways disorder [Unknown]
  - Rhinitis allergic [Unknown]
  - Sinusitis [Unknown]
